FAERS Safety Report 19499673 (Version 11)
Quarter: 2022Q2

REPORT INFORMATION
  Report Type: Spontaneous
  Country: US (occurrence: US)
  Receive Date: 20210706
  Receipt Date: 20220419
  Transmission Date: 20220721
  Serious: Yes (Other)
  Sender: FDA-Public Use
  Company Number: US-PFIZER INC-2021831227

PATIENT
  Age: 59 Year
  Sex: Female

DRUGS (4)
  1. IBRANCE [Suspect]
     Active Substance: PALBOCICLIB
     Dosage: 125 MG
     Dates: start: 202104, end: 202107
  2. IBRANCE [Suspect]
     Active Substance: PALBOCICLIB
     Dosage: 125 MG
     Dates: start: 20210704
  3. IBRANCE [Suspect]
     Active Substance: PALBOCICLIB
     Dosage: 125 MG
     Dates: start: 20211202
  4. IBRANCE [Suspect]
     Active Substance: PALBOCICLIB
     Dosage: UNK
     Dates: start: 20210422, end: 20220407

REACTIONS (13)
  - Vitreous floaters [Unknown]
  - Visual impairment [Unknown]
  - Neuropathy peripheral [Unknown]
  - Tremor [Unknown]
  - Mood altered [Unknown]
  - Stress [Unknown]
  - Oral mucosal blistering [Unknown]
  - Gingival bleeding [Unknown]
  - Stomatitis [Recovered/Resolved]
  - Xanthopsia [Unknown]
  - White blood cell count decreased [Unknown]
  - Oral infection [Unknown]
  - Product dose omission issue [Unknown]

NARRATIVE: CASE EVENT DATE: 20210101
